FAERS Safety Report 17328445 (Version 1)
Quarter: 2020Q1

REPORT INFORMATION
  Report Type: Spontaneous
  Country: NL (occurrence: NL)
  Receive Date: 20200127
  Receipt Date: 20200127
  Transmission Date: 20200409
  Serious: Yes (Hospitalization)
  Sender: FDA-Public Use
  Company Number: NL-MYLANLABS-2020M1009064

PATIENT
  Age: 57 Year
  Sex: Female

DRUGS (6)
  1. LAMICTAL [Concomitant]
     Active Substance: LAMOTRIGINE
     Dosage: 2 DD 3
     Route: 048
  2. FRISIUM [Concomitant]
     Active Substance: CLOBAZAM
     Dosage: 2 DD 1
     Route: 048
  3. PYRIDOXINE [Concomitant]
     Active Substance: PYRIDOXINE
     Dosage: 1 DD 1
     Route: 048
  4. FUCIDIN (FUSIDIC ACID) [Concomitant]
     Active Substance: FUSIDIC ACID
     Dosage: 3 X DAAGS AANBRENGEN
     Route: 003
     Dates: start: 20191015
  5. TERBINAFINE. [Suspect]
     Active Substance: TERBINAFINE
     Indication: FUNGAL INFECTION
     Dosage: 1X DAAGS 1 TABLET
     Route: 048
     Dates: start: 20191015, end: 20191019
  6. OXCARBAMAZEPINE [Concomitant]
     Active Substance: OXCARBAZEPINE
     Dosage: 2 DD 2
     Route: 048

REACTIONS (1)
  - Epilepsy [Recovered/Resolved]

NARRATIVE: CASE EVENT DATE: 20191018
